FAERS Safety Report 22640592 (Version 1)
Quarter: 2023Q2

REPORT INFORMATION
  Report Type: Spontaneous
  Country: US (occurrence: None)
  Receive Date: 20230623
  Receipt Date: 20230623
  Transmission Date: 20230722
  Serious: Yes (Hospitalization)
  Sender: FDA-Public Use
  Company Number: None

PATIENT
  Sex: Female

DRUGS (1)
  1. CAPECITABINE [Suspect]
     Active Substance: CAPECITABINE
     Indication: Breast cancer female
     Dosage: 2000MG BY MOUTH??FREQUENCY: TAKE 4 TABLETS BY MOUTH TWICE A DAY FOR 14 DAYS THEN 7 DAYS OFF.
     Route: 048
     Dates: start: 202305

REACTIONS (3)
  - Cardiovascular disorder [None]
  - Impaired healing [None]
  - Therapy interrupted [None]
